FAERS Safety Report 7097539-X (Version None)
Quarter: 2010Q4

REPORT INFORMATION
  Report Type: 
  Country: None (occurrence: None)
  Receive Date: 20101111
  Receipt Date: 20101101
  Transmission Date: 20110411
  Serious: Yes (Other)
  Sender: FDA-Public Use
  Company Number: US-AMGEN-USASP2010003040

PATIENT

DRUGS (4)
  1. PROCRIT [Suspect]
     Indication: ANAEMIA
     Dosage: 40000 UNIT, QWK
     Route: 058
     Dates: start: 20100601
  2. PROCRIT [Suspect]
     Dosage: 20000 UNIT, UNK
  3. INTERFERON ALFA-2B [Concomitant]
     Dosage: 0.5 ML, QWK
     Route: 058
     Dates: start: 20100309
  4. RIBASPHERE [Concomitant]
     Dosage: 400 MG, BID
     Route: 048
     Dates: start: 20101109

REACTIONS (5)
  - BLOOD URINE PRESENT [None]
  - DYSURIA [None]
  - LOSS OF CONSCIOUSNESS [None]
  - PAIN [None]
  - RENAL PAIN [None]
